FAERS Safety Report 5262307-8 (Version None)
Quarter: 2007Q1

REPORT INFORMATION
  Report Type: 
  Country: None (occurrence: None)
  Receive Date: 20070312
  Receipt Date: 20070226
  Transmission Date: 20070707
  Serious: Yes (Hospitalization)
  Sender: FDA-Public Use
  Company Number: PHBS2007JP01902

PATIENT
  Age: 80 Year
  Sex: Male

DRUGS (9)
  1. MYSLEE [Concomitant]
     Route: 048
  2. TAKEPRON [Concomitant]
     Route: 048
  3. SELBEX [Concomitant]
     Route: 048
  4. LAXOBERON [Concomitant]
     Route: 048
  5. MAGNESIUM OXIDE [Concomitant]
     Route: 048
  6. VOLTAREN [Concomitant]
     Route: 048
  7. DEPAS [Concomitant]
     Route: 048
  8. ANTIBIOTICS [Concomitant]
     Route: 042
  9. TEGRETOL [Suspect]
     Indication: PAIN
     Dosage: 400 MG/DAY
     Route: 048
     Dates: start: 20061101

REACTIONS (5)
  - ANAEMIA [None]
  - HYPERKALAEMIA [None]
  - HYPONATRAEMIA [None]
  - PLEURAL EFFUSION [None]
  - RED BLOOD CELL COUNT DECREASED [None]
